FAERS Safety Report 4763136-1 (Version None)
Quarter: 2005Q3

REPORT INFORMATION
  Report Type: 
  Country: None (occurrence: None)
  Receive Date: 20050826
  Receipt Date: 20041105
  Transmission Date: 20060218
  Serious: Yes (Other)
  Sender: FDA-Public Use
  Company Number: USA-2004-0015445

PATIENT
  Age: 45 Year
  Sex: Male
  Weight: 114.3 kg

DRUGS (11)
  1. OXYCONTIN [Suspect]
     Indication: PAIN
     Dosage: 20 MG
  2. LORTAB [Concomitant]
  3. FLEXERIL [Concomitant]
  4. CELEXA [Concomitant]
  5. PEPCID [Concomitant]
  6. CELEBREX [Concomitant]
  7. RELAFEN [Concomitant]
  8. REMERON [Concomitant]
  9. PREVACID [Concomitant]
  10. PROZAC [Concomitant]
  11. LASIX [Concomitant]

REACTIONS (14)
  - ANXIETY [None]
  - ASTHENIA [None]
  - DEPRESSION [None]
  - DRUG DEPENDENCE [None]
  - DRUG WITHDRAWAL SYNDROME [None]
  - FEAR [None]
  - GASTROOESOPHAGEAL REFLUX DISEASE [None]
  - INJURY [None]
  - IRRITABILITY [None]
  - LIPIDS ABNORMAL [None]
  - MEDICATION ERROR [None]
  - MUSCLE SPASMS [None]
  - PAIN [None]
  - UPPER RESPIRATORY TRACT INFECTION [None]
